FAERS Safety Report 10225199 (Version 2)
Quarter: 2014Q2

REPORT INFORMATION
  Report Type: Spontaneous
  Country: US (occurrence: US)
  Receive Date: 20140609
  Receipt Date: 20140620
  Transmission Date: 20141212
  Serious: Yes (Other)
  Sender: FDA-Public Use
  Company Number: US-MYLANLABS-2014S1012671

PATIENT
  Age: 32 Year
  Sex: Female
  Weight: 80.74 kg

DRUGS (6)
  1. CLOZAPINE TABLETS [Suspect]
     Indication: SCHIZOPHRENIA
     Route: 048
     Dates: start: 201304
  2. FOLIC ACID [Concomitant]
  3. VENLAFAXINE XR [Concomitant]
  4. CLONIDINE [Concomitant]
     Dosage: DOSE UNIT:0.1 MILLIGRAMS PER DAY*
     Route: 062
  5. LAMOTRIGINE [Concomitant]
  6. SIMVASTATIN [Concomitant]
     Indication: BLOOD CHOLESTEROL

REACTIONS (6)
  - Pulse absent [Recovered/Resolved]
  - Dehydration [Recovered/Resolved]
  - Hypotension [Recovered/Resolved]
  - Somnolence [Recovered/Resolved]
  - Dysarthria [Recovered/Resolved]
  - Incorrect drug administration duration [Recovered/Resolved]
